FAERS Safety Report 14826455 (Version 1)
Quarter: 2018Q2

REPORT INFORMATION
  Report Type: Spontaneous
  Country: BE (occurrence: BE)
  Receive Date: 20180430
  Receipt Date: 20180430
  Transmission Date: 20180711
  Serious: Yes (Life-Threatening, Hospitalization, Other)
  Sender: FDA-Public Use
  Company Number: BE-AUROBINDO-AUR-APL-2018-021804

PATIENT
  Age: 51 Year
  Sex: Female

DRUGS (1)
  1. AMIODARONE [Suspect]
     Active Substance: AMIODARONE
     Indication: CONGESTIVE CARDIOMYOPATHY
     Dosage: ()
     Route: 065

REACTIONS (3)
  - Hyperthyroidism [Unknown]
  - Cardiogenic shock [Recovered/Resolved]
  - Cardiac failure [Recovered/Resolved]
